FAERS Safety Report 9235631 (Version 1)
Quarter: 2013Q1

REPORT INFORMATION
  Report Type: Spontaneous
  Country: US (occurrence: None)
  Receive Date: 20121031
  Receipt Date: 20121031
  Transmission Date: 20140127
  Serious: Yes (Other)
  Sender: FDA-Public Use
  Company Number: PHEH2012US011516

PATIENT
  Age: 66 Year
  Sex: Female
  Weight: 135 kg

DRUGS (6)
  1. GILENYA (FTY) CAPSULE, 0.5MG [Suspect]
     Indication: RELAPSING-REMITTING MULTIPLE SCLEROSIS
     Route: 048
     Dates: start: 20111208
  2. ZOLOFT (SERTRALINE HYDROCHLORIDE) [Concomitant]
  3. JANUVIA (SITAGLIPTIN PHOSPHATE) [Concomitant]
  4. GABAPENTIN (GABAPENTIN) [Concomitant]
  5. SAPHRIS (ASENAPINE) [Concomitant]
  6. ENABLEX (DARIFENACIN HYDROBROMIDE) [Concomitant]

REACTIONS (3)
  - Fall [None]
  - Skin injury [None]
  - Urinary tract infection [None]
